FAERS Safety Report 7617158-3 (Version None)
Quarter: 2011Q4

REPORT INFORMATION
  Report Type: 
  Country: None (occurrence: None)
  Receive Date: 20110718
  Receipt Date: 20110712
  Transmission Date: 20120403
  Serious: Yes (Other)
  Sender: FDA-Public Use
  Company Number: BE-BAYER-2011-060826

PATIENT
  Sex: Female

DRUGS (2)
  1. MIRENA [Suspect]
     Indication: CONTRACEPTION
     Dosage: 20 MCG/24HR, CONT
     Route: 015
     Dates: start: 20110401, end: 20110101
  2. YAZ [Suspect]

REACTIONS (4)
  - DEVICE EXPULSION [None]
  - ABDOMINAL PAIN [None]
  - GASTROENTERITIS [None]
  - PREGNANCY ON ORAL CONTRACEPTIVE [None]
